FAERS Safety Report 5719462-2 (Version None)
Quarter: 2008Q2

REPORT INFORMATION
  Report Type: 
  Country: None (occurrence: None)
  Receive Date: 20080428
  Receipt Date: 20080417
  Transmission Date: 20081010
  Serious: Yes (Other)
  Sender: FDA-Public Use
  Company Number: IE-BRISTOL-MYERS SQUIBB COMPANY-14160824

PATIENT
  Age: 35 Year

DRUGS (7)
  1. ATAZANAVIR SULFATE [Suspect]
  2. RITONAVIR [Suspect]
  3. TENOFOVIR DISOPROXIL FUMARATE [Suspect]
  4. EMTRICITABINE [Suspect]
  5. METHADONE HCL [Suspect]
     Dosage: REDUCED TO 910 ML
  6. NITRAZEPAM [Suspect]
  7. DIAZEPAM [Suspect]

REACTIONS (4)
  - ELECTROCARDIOGRAM QT PROLONGED [None]
  - OVERDOSE [None]
  - SYNCOPE [None]
  - TORSADE DE POINTES [None]
